FAERS Safety Report 15346923 (Version 6)
Quarter: 2019Q1

REPORT INFORMATION
  Report Type: Report from Study
  Country: IT (occurrence: IT)
  Receive Date: 20180904
  Receipt Date: 20190226
  Transmission Date: 20190417
  Serious: Yes (Hospitalization)
  Sender: FDA-Public Use
  Company Number: PHHY2018IT083832

PATIENT
  Age: 32 Year
  Sex: Female
  Weight: 98 kg

DRUGS (7)
  1. SIGNIFOR LAR [Suspect]
     Active Substance: PASIREOTIDE
     Indication: ACROMEGALY
     Dosage: 40 MG, QMO
     Route: 030
     Dates: start: 20170811, end: 20180822
  2. SIGNIFOR LAR [Suspect]
     Active Substance: PASIREOTIDE
     Dosage: 20 MG, UNK
     Route: 065
     Dates: start: 20181024
  3. EUTIROX [Concomitant]
     Active Substance: LEVOTHYROXINE SODIUM
     Indication: SECONDARY HYPOTHYROIDISM
     Dosage: 150 UG, UNK
     Route: 048
     Dates: start: 20151107
  4. L THYROXINE [Concomitant]
     Active Substance: LEVOTHYROXINE SODIUM
     Indication: SECONDARY HYPOTHYROIDISM
     Dosage: 150 UG, QD
     Route: 065
     Dates: start: 20151105
  5. ALPRAZOLAM. [Concomitant]
     Active Substance: ALPRAZOLAM
     Indication: ANXIETY DISORDER
     Dosage: 5 GTT, QD
     Route: 065
     Dates: start: 20161024
  6. PEGVISOMANT [Concomitant]
     Active Substance: PEGVISOMANT
     Indication: ACROMEGALY
     Dosage: 30 MG, (EVERY ULTERNATE DAY)
     Route: 065
     Dates: start: 20160927
  7. SOMAVERT [Concomitant]
     Active Substance: PEGVISOMANT
     Indication: ACROMEGALY
     Dosage: 30 MG, UNK
     Route: 058
     Dates: start: 20180922

REACTIONS (7)
  - Hyperglycaemia [Unknown]
  - Vision blurred [Unknown]
  - Diabetic ketoacidosis [Recovered/Resolved]
  - Polydipsia [Unknown]
  - Weight decreased [Unknown]
  - Polyuria [Unknown]
  - Fatigue [Unknown]

NARRATIVE: CASE EVENT DATE: 20180824
